FAERS Safety Report 7381382-8 (Version None)
Quarter: 2011Q1

REPORT INFORMATION
  Report Type: 
  Country: None (occurrence: None)
  Receive Date: 20110324
  Receipt Date: 20110324
  Transmission Date: 20110831
  Serious: Yes (Disabling)
  Sender: FDA-Public Use
  Company Number: None

PATIENT
  Sex: Female
  Weight: 56.6996 kg

DRUGS (1)
  1. METFORMIN HCL [Suspect]
     Indication: BLOOD GLUCOSE
     Dosage: 1000 MG TWICE DAILY ORAL
     Route: 048
     Dates: start: 19940101, end: 20101201

REACTIONS (1)
  - RENAL FAILURE [None]
